FAERS Safety Report 5425365-3 (Version None)
Quarter: 2007Q3

REPORT INFORMATION
  Report Type: 
  Country: None (occurrence: None)
  Receive Date: 20070731
  Receipt Date: 20070403
  Transmission Date: 20080115
  Serious: No
  Sender: FDA-Public Use
  Company Number: US200704000987

PATIENT
  Age: 66 Year
  Sex: Female
  Weight: 94.3 kg

DRUGS (7)
  1. BYETTA [Suspect]
     Indication: TYPE 2 DIABETES MELLITUS
     Dosage: 5 UG, 2/D, SUBCUTANEOUS; 10 UG, 2/D, SUBCUTANEOUS; 19 UG, OTHER, SUBCUTANEOUS
     Route: 058
     Dates: start: 20070101, end: 20070201
  2. BYETTA [Suspect]
     Indication: TYPE 2 DIABETES MELLITUS
     Dosage: 5 UG, 2/D, SUBCUTANEOUS; 10 UG, 2/D, SUBCUTANEOUS; 19 UG, OTHER, SUBCUTANEOUS
     Route: 058
     Dates: start: 20070201, end: 20070301
  3. BYETTA [Suspect]
     Indication: TYPE 2 DIABETES MELLITUS
     Dosage: 5 UG, 2/D, SUBCUTANEOUS; 10 UG, 2/D, SUBCUTANEOUS; 19 UG, OTHER, SUBCUTANEOUS
     Route: 058
     Dates: start: 20070402, end: 20070402
  4. BYETTA [Suspect]
     Indication: TYPE 2 DIABETES MELLITUS
     Dosage: 5 UG, 2/D, SUBCUTANEOUS; 10 UG, 2/D, SUBCUTANEOUS; 19 UG, OTHER, SUBCUTANEOUS
     Route: 058
     Dates: start: 20070301
  5. BYETTA [Suspect]
  6. EXENATIDE PEN, DISPOSABLE DEVICE (EXENATIDE PEN) PEN DISPOSABLE [Concomitant]
  7. GLUCOPHAGE [Concomitant]

REACTIONS (4)
  - BLOOD GLUCOSE DECREASED [None]
  - INCORRECT DOSE ADMINISTERED [None]
  - INSOMNIA [None]
  - WEIGHT DECREASED [None]
